FAERS Safety Report 18587127 (Version 3)
Quarter: 2025Q4

REPORT INFORMATION
  Report Type: Spontaneous
  Country: EU (occurrence: EU)
  Receive Date: 20201207
  Receipt Date: 20251202
  Transmission Date: 20260117
  Serious: Yes (Other)
  Sender: MYLAN
  Company Number: None

PATIENT
  Age: 13 Year
  Sex: Male
  Weight: 47 kg

DRUGS (17)
  1. TACROLIMUS [Suspect]
     Active Substance: TACROLIMUS
     Indication: Nephrotic syndrome
     Dosage: UNK
  2. PREDNISONE [Suspect]
     Active Substance: PREDNISONE
     Indication: Nephrotic syndrome
     Dosage: 20 MILLIGRAM, QD (AFTER DARATUMUMAB INFUSION)
  3. PREDNISONE [Suspect]
     Active Substance: PREDNISONE
     Dosage: 60 MILLIGRAM/SQ. METER, Q2D
  4. PREDNISONE [Suspect]
     Active Substance: PREDNISONE
     Dosage: Q2D (2 DAYS)
  5. METHYLPREDNISOLONE [Suspect]
     Active Substance: METHYLPREDNISOLONE
     Indication: Nephrotic syndrome
     Dosage: 1 MILLIGRAM/KILOGRAM
  6. LEVAMISOLE [Suspect]
     Active Substance: LEVAMISOLE
     Indication: Nephrotic syndrome
     Dosage: UNK
  7. RITUXIMAB [Suspect]
     Active Substance: RITUXIMAB
     Indication: Nephrotic syndrome
     Dosage: 1500 MILLIGRAM/SQ. METER (4 INJECTIONS)
  8. RITUXIMAB [Suspect]
     Active Substance: RITUXIMAB
     Dosage: 375 MILLIGRAM/SQ. METER (1 INJECTIONS)
  9. RITUXIMAB [Suspect]
     Active Substance: RITUXIMAB
     Dosage: 750 MILLIGRAM/SQ. METER (2 INJECTIONS)
  10. RITUXIMAB [Suspect]
     Active Substance: RITUXIMAB
     Dosage: 375 MILLIGRAM/SQ. METER (1 INJECTIONS)
  11. OFATUMUMAB [Suspect]
     Active Substance: OFATUMUMAB
     Indication: Nephrotic syndrome
     Dosage: 375 MILLIGRAM/SQ. METER, (1 INJECTION)
  12. DARATUMUMAB [Suspect]
     Active Substance: DARATUMUMAB
     Indication: Nephrotic syndrome
     Dosage: 820 MILLIGRAM (AT DAY 14)
  13. OBINUTUZUMAB [Suspect]
     Active Substance: OBINUTUZUMAB
     Indication: Nephrotic syndrome
     Dosage: 820 MILLIGRAM (AT DAY 0  )
  14. MYCOPHENOLATE MOFETIL [Concomitant]
     Active Substance: MYCOPHENOLATE MOFETIL
     Indication: Nephrotic syndrome
     Dosage: UNK
  15. SULFAMETHOXAZOLE [Concomitant]
     Active Substance: SULFAMETHOXAZOLE
     Indication: Product used for unknown indication
     Dosage: 800 MILLIGRAM (0.33 WEEK)
  16. ACETAMINOPHEN [Concomitant]
     Active Substance: ACETAMINOPHEN
     Indication: Product used for unknown indication
     Dosage: 15 MILLIGRAM/KILOGRAM
  17. DEXCHLORPHENIRAMINE [Concomitant]
     Active Substance: DEXCHLORPHENIRAMINE
     Indication: Product used for unknown indication
     Dosage: UNK

REACTIONS (6)
  - Nephrotic syndrome [Recovered/Resolved]
  - Hypogammaglobulinaemia [Unknown]
  - Blood immunoglobulin A decreased [Unknown]
  - Vomiting [Unknown]
  - Product use in unapproved indication [Unknown]
  - Off label use [Unknown]
